FAERS Safety Report 8403618-4 (Version None)
Quarter: 2012Q2

REPORT INFORMATION
  Report Type: 
  Country: None (occurrence: None)
  Receive Date: 20120601
  Receipt Date: 20120521
  Transmission Date: 20120825
  Serious: Yes (Death)
  Sender: FDA-Public Use
  Company Number: PH-CELGENEUS-128-21880-12052501

PATIENT
  Sex: Female
  Weight: 47.67 kg

DRUGS (1)
  1. REVLIMID [Suspect]
     Route: 048

REACTIONS (3)
  - SEPSIS [None]
  - PNEUMONIA [None]
  - RENAL FAILURE ACUTE [None]
